FAERS Safety Report 4473784-4 (Version None)
Quarter: 2004Q3

REPORT INFORMATION
  Report Type: 
  Country: None (occurrence: None)
  Receive Date: 20040910
  Receipt Date: 20040715
  Transmission Date: 20050211
  Serious: No
  Sender: FDA-Public Use
  Company Number: 2003187770US

PATIENT
  Age: 69 Year
  Sex: Female

DRUGS (6)
  1. BEXTRA [Suspect]
     Indication: ARTHRITIS
     Dosage: 10 MG, QD, ORAL
     Route: 048
     Dates: start: 20030804, end: 20030806
  2. PREVACID [Concomitant]
  3. CALCIUM [Concomitant]
  4. INSULIN [Concomitant]
  5. GLUCOPHAGE [Concomitant]
  6. GLUCOVANCE [Concomitant]

REACTIONS (6)
  - ANAL DISCOMFORT [None]
  - DYSURIA [None]
  - ERUCTATION [None]
  - NERVOUSNESS [None]
  - SLEEP DISORDER [None]
  - WEIGHT DECREASED [None]
